FAERS Safety Report 19001917 (Version 1)
Quarter: 2021Q1

REPORT INFORMATION
  Report Type: Spontaneous
  Country: US (occurrence: US)
  Receive Date: 20210312
  Receipt Date: 20210312
  Transmission Date: 20210420
  Serious: Yes (Disabling)
  Sender: FDA-Public Use
  Company Number: None

PATIENT
  Age: 69 Year
  Sex: Female
  Weight: 67.5 kg

DRUGS (5)
  1. MORPHINE [Concomitant]
     Active Substance: MORPHINE
  2. PENICILLIN [Concomitant]
     Active Substance: PENICILLIN
  3. NITROFURANTOIN MONOHYDRATE MACROCRYSTALS [Suspect]
     Active Substance: NITROFURANTOIN\NITROFURANTOIN MONOHYDRATE
     Indication: URINARY TRACT INFECTION
     Dosage: ?          OTHER STRENGTH:ALV;QUANTITY:14 CAPSULE(S);?
     Route: 048
     Dates: start: 20210311, end: 20210312
  4. LATEX [Concomitant]
     Active Substance: NATURAL LATEX RUBBER
  5. CODEINE [Concomitant]
     Active Substance: CODEINE

REACTIONS (8)
  - Arthralgia [None]
  - Chills [None]
  - Flatulence [None]
  - Headache [None]
  - Myalgia [None]
  - Dyspnoea [None]
  - Peripheral swelling [None]
  - Tinnitus [None]

NARRATIVE: CASE EVENT DATE: 20210311
